FAERS Safety Report 21377310 (Version 5)
Quarter: 2022Q4

REPORT INFORMATION
  Report Type: Spontaneous
  Country: DE (occurrence: DE)
  Receive Date: 20220926
  Receipt Date: 20221118
  Transmission Date: 20230113
  Serious: Yes (Hospitalization)
  Sender: FDA-Public Use
  Company Number: DE-NOVARTISPH-NVSC2022DE179245

PATIENT
  Age: 70 Year
  Sex: Female
  Weight: 68.4 kg

DRUGS (16)
  1. CARBOPLATIN [Suspect]
     Active Substance: CARBOPLATIN
     Indication: Breast cancer female
     Dosage: 605.5 MG, Q3W (Q21D)
     Route: 042
     Dates: start: 20220713, end: 20220720
  2. CARBOPLATIN [Suspect]
     Active Substance: CARBOPLATIN
     Dosage: 233 MG, Q3W (Q21D CARBOPLATIN WAS REDUCED FROM AUC 6 TO AUC 4 (TOTAL DOSE 233 MG))
     Route: 042
     Dates: start: 20220803, end: 20220810
  3. CARBOPLATIN [Suspect]
     Active Substance: CARBOPLATIN
     Dosage: 309 MG, Q3W (Q12D)
     Route: 042
     Dates: end: 20220906
  4. DOCETAXEL [Suspect]
     Active Substance: DOCETAXEL
     Indication: Breast cancer female
     Dosage: 130 MG, Q3W (Q21D)
     Route: 042
     Dates: start: 20220713, end: 20220720
  5. DOCETAXEL [Suspect]
     Active Substance: DOCETAXEL
     Dosage: 105.6 MG, Q3W (Q21D DOCETAXEL WAS REDUCED FROM 75 MG/KG TO 60 M/KG (TOTAL DOSE 105.6 MG))
     Route: 042
     Dates: start: 20220803, end: 20220810
  6. DOCETAXEL [Suspect]
     Active Substance: DOCETAXEL
     Dosage: 104 MG, Q3W (EVERY 21 DAYS)
     Route: 042
     Dates: end: 20220906
  7. PERJETA [Suspect]
     Active Substance: PERTUZUMAB
     Indication: Breast cancer female
     Dosage: 840 MG, Q3W (Q21D)
     Route: 042
     Dates: start: 20220713, end: 20220720
  8. PERJETA [Suspect]
     Active Substance: PERTUZUMAB
     Dosage: 420 MG, Q3W
     Route: 042
     Dates: end: 20220810
  9. PERJETA [Suspect]
     Active Substance: PERTUZUMAB
     Dosage: 420 MG, Q3W
     Route: 042
     Dates: end: 20220906
  10. ATORVASTATIN [Concomitant]
     Active Substance: ATORVASTATIN
     Indication: Blood cholesterol increased
     Dosage: 20 MG, QD
     Route: 048
     Dates: start: 20200630
  11. METOPROLOL [Concomitant]
     Active Substance: METOPROLOL
     Indication: Hypertension
     Dosage: 47.5 MG, QD
     Route: 048
     Dates: start: 20200630
  12. SITAGLIPTIN PHOSPHATE [Concomitant]
     Active Substance: SITAGLIPTIN PHOSPHATE
     Indication: Diabetes mellitus
     Dosage: 100 MG, QD
     Route: 048
     Dates: start: 20200630
  13. POTASSIUM CHLORIDE [Concomitant]
     Active Substance: POTASSIUM CHLORIDE
     Indication: Product used for unknown indication
     Dosage: 40 MG
     Route: 042
     Dates: start: 20220609, end: 20220609
  14. FRESUBIN [Concomitant]
     Active Substance: AMINO ACIDS\DEXTROSE\ELECTROLYTES NOS\SOYBEAN OIL\VITAMINS
     Indication: Decreased appetite
     Dosage: UNK, QD
     Route: 048
     Dates: start: 20220609
  15. CALCIUM CHLORIDE\MAGNESIUM CHLORIDE\POTASSIUM CHLORIDE\SODIUM ACETATE\ [Concomitant]
     Active Substance: CALCIUM CHLORIDE\MAGNESIUM CHLORIDE\POTASSIUM CHLORIDE\SODIUM ACETATE\SODIUM CHLORIDE
     Indication: Dehydration
     Dosage: 2000 ML, QD
     Route: 042
     Dates: start: 20220609
  16. ENOXAPARIN SODIUM [Concomitant]
     Active Substance: ENOXAPARIN SODIUM
     Indication: Thrombosis prophylaxis
     Dosage: 20 MG, QD
     Route: 058
     Dates: start: 20220906

REACTIONS (5)
  - Renal failure [Recovered/Resolved]
  - Infection [Recovered/Resolved]
  - Blood creatinine increased [Not Recovered/Not Resolved]
  - Diarrhoea [Recovered/Resolved]
  - Leukocytosis [Unknown]

NARRATIVE: CASE EVENT DATE: 20220720
